FAERS Safety Report 21003096 (Version 2)
Quarter: 2022Q3

REPORT INFORMATION
  Report Type: Report from Study
  Country: CA (occurrence: CA)
  Receive Date: 20220624
  Receipt Date: 20220812
  Transmission Date: 20221026
  Serious: Yes (Other)
  Sender: FDA-Public Use
  Company Number: CA-UCBSA-2022034476

PATIENT
  Sex: Female

DRUGS (1)
  1. CERTOLIZUMAB PEGOL [Suspect]
     Active Substance: CERTOLIZUMAB PEGOL
     Indication: Rheumatoid arthritis
     Dosage: 400 MILLIGRAM, EV 2 WEEKS(QOW)
     Route: 058
     Dates: start: 20220514, end: 20220614

REACTIONS (6)
  - Ocular hypertension [Unknown]
  - Uveitis [Unknown]
  - Fatigue [Unknown]
  - Photosensitivity reaction [Unknown]
  - Cough [Unknown]
  - Decreased appetite [Unknown]
